FAERS Safety Report 17308305 (Version 1)
Quarter: 2020Q1

REPORT INFORMATION
  Report Type: Report from Study
  Country: FR (occurrence: FR)
  Receive Date: 20200123
  Receipt Date: 20200123
  Transmission Date: 20200409
  Serious: Yes (Other)
  Sender: FDA-Public Use
  Company Number: FR-MYLANLABS-2020M1006853

PATIENT
  Age: 64 Year
  Sex: Female
  Weight: 53 kg

DRUGS (4)
  1. ALPELISIB [Suspect]
     Active Substance: ALPELISIB
     Dosage: 300 MG, QD
     Route: 048
     Dates: start: 20190805
  2. ALPELISIB [Suspect]
     Active Substance: ALPELISIB
     Indication: BREAST CANCER
     Dosage: 300 MG, QD
     Route: 048
     Dates: start: 20190717, end: 20190728
  3. FULVESTRANT. [Suspect]
     Active Substance: FULVESTRANT
     Dosage: UNK
     Route: 065
     Dates: start: 20190805
  4. FULVESTRANT. [Suspect]
     Active Substance: FULVESTRANT
     Indication: BREAST CANCER
     Dosage: UNK
     Route: 065
     Dates: start: 20190717, end: 20190728

REACTIONS (7)
  - Drug ineffective [Unknown]
  - Malignant neoplasm progression [Unknown]
  - Liver disorder [Unknown]
  - Rash erythematous [Recovered/Resolved]
  - Breast cancer [Unknown]
  - Skin toxicity [Unknown]
  - Rash [Recovered/Resolved]

NARRATIVE: CASE EVENT DATE: 20190728
